FAERS Safety Report 5190472-X (Version None)
Quarter: 2006Q4

REPORT INFORMATION
  Report Type: 
  Country: None (occurrence: None)
  Receive Date: 20061222
  Receipt Date: 20050201
  Transmission Date: 20070319
  Serious: Yes (Death)
  Sender: FDA-Public Use
  Company Number: CA-GLAXOSMITHKLINE-A0544096A

PATIENT
  Age: 16 Year
  Sex: Male

DRUGS (3)
  1. PAXIL [Suspect]
     Indication: ANXIETY
     Route: 048
     Dates: start: 20030101, end: 20031001
  2. ZYPREXA [Suspect]
  3. ACCUTANE [Suspect]

REACTIONS (3)
  - ANXIETY [None]
  - COMPLETED SUICIDE [None]
  - NIGHTMARE [None]
